FAERS Safety Report 10876251 (Version 1)
Quarter: 2015Q1

REPORT INFORMATION
  Report Type: Spontaneous
  Country: US (occurrence: US)
  Receive Date: 20150227
  Receipt Date: 20150227
  Transmission Date: 20150721
  Serious: No
  Sender: FDA-Public Use
  Company Number: US-AMGEN-USASP2014026084

PATIENT
  Age: 15 Year
  Sex: Male
  Weight: 107.94 kg

DRUGS (4)
  1. CLARITIN [Concomitant]
     Active Substance: LORATADINE
     Dosage: 5 MG, UNK
  2. ENBREL [Suspect]
     Active Substance: ETANERCEPT
     Indication: PRODUCT USED FOR UNKNOWN INDICATION
     Dosage: 25 MG, 2 TIMES/WK (EVERY MONDAY + THURSDAY)
     Route: 058
  3. CHOLEST OFF NATURE MADE [Concomitant]
     Dosage: UNK
  4. MOBIC [Concomitant]
     Active Substance: MELOXICAM
     Dosage: 15 MG, UNK

REACTIONS (5)
  - Injection site reaction [Recovered/Resolved]
  - Pain [Recovered/Resolved]
  - Musculoskeletal stiffness [Recovered/Resolved]
  - Therapeutic response decreased [Recovered/Resolved]
  - Injection site bruising [Recovered/Resolved]
